FAERS Safety Report 11535410 (Version 1)
Quarter: 2015Q3

REPORT INFORMATION
  Report Type: Spontaneous
  Country: US (occurrence: None)
  Receive Date: 20150921
  Receipt Date: 20150921
  Transmission Date: 20151125
  Serious: Yes (Other)
  Sender: FDA-Public Use
  Company Number: None

PATIENT
  Age: 51 Month
  Sex: Female
  Weight: 81.19 kg

DRUGS (5)
  1. MULTIPLE VITAMIN [Concomitant]
     Active Substance: VITAMINS
  2. BUSPIRONE 5 MG TEVA [Suspect]
     Active Substance: BUSPIRONE HYDROCHLORIDE
     Indication: GENERALISED ANXIETY DISORDER
     Route: 048
     Dates: start: 20150414, end: 20150521
  3. ATENOLOL. [Concomitant]
     Active Substance: ATENOLOL
  4. LEXAPRO [Suspect]
     Active Substance: ESCITALOPRAM OXALATE
     Indication: GENERALISED ANXIETY DISORDER
     Route: 048
  5. KLONOPIN [Concomitant]
     Active Substance: CLONAZEPAM

REACTIONS (3)
  - Reaction to drug excipients [None]
  - General physical health deterioration [None]
  - Drug hypersensitivity [None]
